FAERS Safety Report 8880601 (Version 1)
Quarter: 2012Q4

REPORT INFORMATION
  Report Type: 
  Country: US (occurrence: US)
  Receive Date: 20121101
  Receipt Date: 20121101
  Transmission Date: 20130627
  Serious: No
  Sender: FDA-Public Use
  Company Number: US-009507513-1210USA013092

PATIENT
  Sex: Female

DRUGS (5)
  1. PEGINTRON [Suspect]
     Indication: HEPATITIS C
     Dosage: UNK
     Route: 058
     Dates: start: 20031003, end: 20040903
  2. PEGINTRON [Suspect]
     Dosage: UNK
     Route: 058
     Dates: start: 20111125, end: 20120518
  3. REBETOL [Suspect]
     Indication: HEPATITIS C
     Dosage: UNK
     Route: 048
     Dates: start: 20031003, end: 20040903
  4. REBETOL [Suspect]
     Dosage: UNK
     Route: 048
     Dates: start: 20111125, end: 20120518
  5. VICTRELIS [Suspect]
     Indication: HEPATITIS C
     Dosage: UNK
     Route: 048
     Dates: start: 20111124, end: 20120518

REACTIONS (1)
  - Drug ineffective [Unknown]
